FAERS Safety Report 7535012-2 (Version None)
Quarter: 2011Q2

REPORT INFORMATION
  Report Type: 
  Country: None (occurrence: None)
  Receive Date: 20110609
  Receipt Date: 20110601
  Transmission Date: 20111010
  Serious: No
  Sender: FDA-Public Use
  Company Number: US-BIOGENIDEC-2011BI007560

PATIENT
  Age: 57 Year
  Sex: Female

DRUGS (1)
  1. TYSABRI [Suspect]
     Indication: MULTIPLE SCLEROSIS
     Route: 042
     Dates: start: 20100525

REACTIONS (7)
  - HEMIPARESIS [None]
  - FATIGUE [None]
  - MUSCULOSKELETAL DISORDER [None]
  - NARCOLEPSY [None]
  - COORDINATION ABNORMAL [None]
  - ORAL PUSTULE [None]
  - FALL [None]
